FAERS Safety Report 13485440 (Version 4)
Quarter: 2017Q4

REPORT INFORMATION
  Report Type: Spontaneous
  Country: US (occurrence: US)
  Receive Date: 20170425
  Receipt Date: 20171116
  Transmission Date: 20180320
  Serious: Yes (Hospitalization)
  Sender: FDA-Public Use
  Company Number: US-PFIZER INC-2017173502

PATIENT
  Age: 62 Year
  Sex: Female
  Weight: 70.31 kg

DRUGS (14)
  1. LYRICA [Suspect]
     Active Substance: PREGABALIN
     Indication: NEURALGIA
     Dosage: 75 MG, 2X/DAY
  2. LYRICA [Suspect]
     Active Substance: PREGABALIN
     Dosage: 150 MG, 2X/DAY
  3. OMEGA 3,6,7,9 [Concomitant]
     Dosage: UNK
     Dates: start: 2013
  4. LYRICA [Suspect]
     Active Substance: PREGABALIN
     Dosage: 50 MG, 2X/DAY
     Dates: start: 201607
  5. CENTRUM SILVER [Concomitant]
     Active Substance: MINERALS\VITAMINS
     Dosage: UNK
     Dates: start: 201309, end: 201309
  6. VITAMIN D3 [Concomitant]
     Active Substance: CHOLECALCIFEROL
     Dosage: UNK
     Dates: start: 200309
  7. AMLODIPINE [Concomitant]
     Active Substance: AMLODIPINE BESYLATE
     Indication: BLOOD PRESSURE ABNORMAL
     Dosage: 5 MG, 1X/DAY
     Route: 048
     Dates: start: 200409
  8. CARVEDILOL. [Concomitant]
     Active Substance: CARVEDILOL
     Indication: BLOOD PRESSURE ABNORMAL
     Dosage: 3 MG, 2X/DAY
     Route: 048
     Dates: start: 200503
  9. CENTRUM WOMEN 50+ [Concomitant]
     Indication: MINERAL SUPPLEMENTATION
     Dosage: UNK
     Dates: start: 201309
  10. VITAMIN D3 [Concomitant]
     Active Substance: CHOLECALCIFEROL
     Indication: OSTEOPOROSIS
     Dosage: 2000 IU, 1X/DAY
     Route: 048
     Dates: start: 200909
  11. CENTRUM WOMEN 50+ [Concomitant]
     Indication: VITAMIN SUPPLEMENTATION
     Dosage: 1 DF, 1X/DAY
     Route: 048
     Dates: start: 201612, end: 2017
  12. LYRICA [Suspect]
     Active Substance: PREGABALIN
     Dosage: 50 MG, 3X/DAY
     Route: 048
     Dates: start: 20160505
  13. OMEGA 3,6,7,9 [Concomitant]
     Indication: IMMUNE SYSTEM DISORDER
     Dosage: 1000 MG, 2X/DAY
     Route: 048
     Dates: start: 2017
  14. CALCIUM [Concomitant]
     Active Substance: CALCIUM
     Indication: OSTEOPOROSIS
     Dosage: 500 MG, 1X/DAY
     Route: 048
     Dates: start: 200309

REACTIONS (16)
  - Balance disorder [Recovered/Resolved]
  - Hallucination [Unknown]
  - Abnormal dreams [Unknown]
  - Sinus disorder [Unknown]
  - Paraesthesia [Not Recovered/Not Resolved]
  - Feeling hot [Not Recovered/Not Resolved]
  - Euphoric mood [Recovered/Resolved]
  - Vertigo [Not Recovered/Not Resolved]
  - Irritability [Recovering/Resolving]
  - Anger [Recovered/Resolved]
  - Pain [Unknown]
  - Nightmare [Recovered/Resolved]
  - Tinnitus [Unknown]
  - Feeling abnormal [Not Recovered/Not Resolved]
  - Osteosclerosis [Unknown]
  - Drug ineffective for unapproved indication [Unknown]

NARRATIVE: CASE EVENT DATE: 2007
